FAERS Safety Report 8827831 (Version 2)
Quarter: 2012Q4

REPORT INFORMATION
  Report Type: 
  Country: US (occurrence: US)
  Receive Date: 20121005
  Receipt Date: 20121017
  Transmission Date: 20130627
  Serious: Yes (Hospitalization, Other)
  Sender: FDA-Public Use
  Company Number: US-PFIZER INC-2012243112

PATIENT
  Age: 70 Year
  Sex: Female

DRUGS (1)
  1. REVATIO [Suspect]
     Indication: PULMONARY HYPERTENSION
     Dosage: 20 mg, 3x/day
     Dates: start: 20120116

REACTIONS (1)
  - Pneumonia viral [Unknown]
